FAERS Safety Report 9870363 (Version 1)
Quarter: 2014Q1

REPORT INFORMATION
  Report Type: Spontaneous
  Country: US (occurrence: US)
  Receive Date: 20140205
  Receipt Date: 20140205
  Transmission Date: 20141002
  Serious: No
  Sender: FDA-Public Use
  Company Number: US-BAXTER-2014BAX005677

PATIENT
  Sex: 0

DRUGS (1)
  1. 5% DEXTROSE INJECTION, USP [Suspect]
     Indication: CATHETER MANAGEMENT
     Route: 042
     Dates: start: 20140127, end: 20140127

REACTIONS (2)
  - Wrong drug administered [Recovered/Resolved]
  - Red blood cell agglutination [Unknown]
